FAERS Safety Report 8139051-2 (Version None)
Quarter: 2012Q1

REPORT INFORMATION
  Report Type: 
  Country: None (occurrence: None)
  Receive Date: 20120215
  Receipt Date: 20120213
  Transmission Date: 20120608
  Serious: Yes (Death, Hospitalization, Other)
  Sender: FDA-Public Use
  Company Number: US-BAYER-201033668NA

PATIENT
  Age: 55 Year
  Sex: Male

DRUGS (3)
  1. NEXAVAR [Suspect]
     Dosage: 400 MG, BID
     Route: 048
  2. NEXAVAR [Suspect]
     Dosage: 400 MG, BID
     Route: 048
  3. NEXAVAR [Suspect]
     Indication: HEPATIC NEOPLASM MALIGNANT
     Dosage: 400 MG, BID
     Route: 048
     Dates: start: 20100802

REACTIONS (7)
  - NEOPLASM PROGRESSION [None]
  - DIARRHOEA [None]
  - NAUSEA [None]
  - DEATH [None]
  - HEPATIC NEOPLASM MALIGNANT [None]
  - HOSPITALISATION [None]
  - BONE OPERATION [None]
